FAERS Safety Report 7590886-4 (Version None)
Quarter: 2011Q3

REPORT INFORMATION
  Report Type: 
  Country: None (occurrence: None)
  Receive Date: 20110705
  Receipt Date: 20110623
  Transmission Date: 20111222
  Serious: Yes (Hospitalization)
  Sender: FDA-Public Use
  Company Number: PHHY2011US25135

PATIENT
  Sex: Male

DRUGS (5)
  1. EXTAVIA [Suspect]
     Indication: MULTIPLE SCLEROSIS
     Dosage: 0.25 MG, QOD
     Route: 058
     Dates: start: 20101223
  2. AVONEX [Concomitant]
  3. AMBIEN [Concomitant]
     Dosage: 6.25 MG, PRN
  4. CLONAZEPAM [Concomitant]
     Dosage: 5 MG, 1 AM AND 1 PM
  5. CELEXA [Concomitant]
     Dosage: 20 MG, QD

REACTIONS (2)
  - ABNORMAL BEHAVIOUR [None]
  - MEMORY IMPAIRMENT [None]
